FAERS Safety Report 9337456 (Version 1)
Quarter: 2013Q2

REPORT INFORMATION
  Report Type: Spontaneous
  Country: US (occurrence: US)
  Receive Date: 20130607
  Receipt Date: 20130607
  Transmission Date: 20140414
  Serious: No
  Sender: FDA-Public Use
  Company Number: US-009507513-1305USA009879

PATIENT
  Sex: Male

DRUGS (3)
  1. VYTORIN [Suspect]
     Dosage: UNK
     Route: 048
     Dates: start: 2005
  2. CRESTOR [Concomitant]
  3. LIPITOR [Concomitant]

REACTIONS (1)
  - Pain [Not Recovered/Not Resolved]
